FAERS Safety Report 23333347 (Version 2)
Quarter: 2024Q1

REPORT INFORMATION
  Report Type: Report from Study
  Country: US (occurrence: US)
  Receive Date: 20231222
  Receipt Date: 20240207
  Transmission Date: 20240410
  Serious: Yes (Death, Other)
  Sender: FDA-Public Use
  Company Number: US-OTSUKA-2023_033231

PATIENT
  Age: 88 Year
  Sex: Female

DRUGS (1)
  1. DEXTROMETHORPHAN HYDROBROMIDE\QUINIDINE SULFATE [Suspect]
     Active Substance: DEXTROMETHORPHAN HYDROBROMIDE\QUINIDINE SULFATE
     Indication: Affect lability
     Dosage: 1 DF (20 MG-10 MG), BID
     Route: 048

REACTIONS (4)
  - Death [Fatal]
  - Dementia Alzheimer^s type [Unknown]
  - Pseudobulbar palsy [Unknown]
  - Depression [Unknown]

NARRATIVE: CASE EVENT DATE: 20231201
